FAERS Safety Report 7321243-3 (Version None)
Quarter: 2011Q1

REPORT INFORMATION
  Report Type: 
  Country: None (occurrence: None)
  Receive Date: 20110228
  Receipt Date: 20110216
  Transmission Date: 20110831
  Serious: Yes (Other)
  Sender: FDA-Public Use
  Company Number: PHBS2009AU00885

PATIENT
  Age: 50 Year
  Sex: Male

DRUGS (3)
  1. MYCOPHENOLATE MOFETIL [Concomitant]
     Dosage: 2 G, UNK
     Route: 048
     Dates: start: 20050514
  2. PREDNISOLONE [Concomitant]
     Dosage: WEANING REGIMEN
     Dates: start: 20050514
  3. CICLOSPORIN [Suspect]
     Indication: LUNG TRANSPLANT
     Dosage: 400 MG, UNK
     Route: 048
     Dates: start: 20050514, end: 20050524

REACTIONS (11)
  - HYPOTONIA [None]
  - COAGULOPATHY [None]
  - RESTLESSNESS [None]
  - DYSKINESIA [None]
  - IMMUNOSUPPRESSANT DRUG LEVEL DECREASED [None]
  - PERICARDIAL HAEMORRHAGE [None]
  - HAEMORRHAGE [None]
  - DEPRESSED LEVEL OF CONSCIOUSNESS [None]
  - COMPLICATIONS OF TRANSPLANTED LUNG [None]
  - BLOOD PRESSURE ABNORMAL [None]
  - POSTERIOR REVERSIBLE ENCEPHALOPATHY SYNDROME [None]
